FAERS Safety Report 11964639 (Version 1)
Quarter: 2016Q1

REPORT INFORMATION
  Report Type: Spontaneous
  Country: FR (occurrence: FR)
  Receive Date: 20160127
  Receipt Date: 20160127
  Transmission Date: 20160526
  Serious: Yes (Other)
  Sender: FDA-Public Use
  Company Number: FR-BRISTOL-MYERS SQUIBB COMPANY-10197861

PATIENT
  Age: 1 Day
  Sex: Male
  Weight: 3.4 kg

DRUGS (2)
  1. CORTICOID [Concomitant]
     Active Substance: UNSPECIFIED INGREDIENT
     Indication: PRODUCT USED FOR UNKNOWN INDICATION
     Dosage: 20 MG, QD
     Route: 064
     Dates: start: 19990728
  2. HYDREA [Suspect]
     Active Substance: HYDROXYUREA
     Indication: PRODUCT USED FOR UNKNOWN INDICATION
     Dosage: 500 MG, INTERMITTENT
     Route: 064
     Dates: start: 19990728

REACTIONS (2)
  - Foetal exposure during pregnancy [Unknown]
  - Foetal arrhythmia [Unknown]
